FAERS Safety Report 6970050-X (Version None)
Quarter: 2010Q3

REPORT INFORMATION
  Report Type: 
  Country: None (occurrence: None)
  Receive Date: 20100908
  Receipt Date: 20100831
  Transmission Date: 20110219
  Serious: Yes (Hospitalization)
  Sender: FDA-Public Use
  Company Number: JP-BRISTOL-MYERS SQUIBB COMPANY-15273287

PATIENT
  Age: 51 Year
  Sex: Female

DRUGS (4)
  1. ABILIFY [Suspect]
     Dosage: TABS,12 MG, FOR 3YRS
     Route: 048
  2. AMOBAN [Suspect]
     Dosage: TABS.
     Route: 048
  3. EVAMYL [Suspect]
     Dosage: TAB.
     Route: 048
  4. LAMISIL [Suspect]
     Dosage: TABS.
     Route: 048

REACTIONS (5)
  - ABDOMINAL PAIN LOWER [None]
  - DIZZINESS [None]
  - DYSURIA [None]
  - GAZE PALSY [None]
  - HEADACHE [None]
